FAERS Safety Report 6978511-4 (Version None)
Quarter: 2010Q3

REPORT INFORMATION
  Report Type: 
  Country: None (occurrence: None)
  Receive Date: 20100913
  Receipt Date: 20100903
  Transmission Date: 20110219
  Serious: Yes (Hospitalization, Other)
  Sender: FDA-Public Use
  Company Number: BE-ABBOTT-10P-013-0665971-00

PATIENT
  Sex: Female

DRUGS (3)
  1. HUMIRA [Suspect]
     Indication: RHEUMATOID ARTHRITIS
     Dates: start: 20070320
  2. MEDROL [Concomitant]
     Indication: PRODUCT USED FOR UNKNOWN INDICATION
     Dosage: 14 MG, DAILY
  3. FLUDROCORTISONE [Concomitant]
     Indication: PRODUCT USED FOR UNKNOWN INDICATION
     Dosage: 50 MCG, DAILY

REACTIONS (26)
  - ABDOMINAL DISTENSION [None]
  - AMYOTROPHY [None]
  - APNOEIC ATTACK [None]
  - ASTHENIA [None]
  - BALANCE DISORDER [None]
  - BRONCHITIS [None]
  - BRONCHOPNEUMOPATHY [None]
  - DECREASED APPETITE [None]
  - DEHYDRATION [None]
  - EMPHYSEMA [None]
  - FALL [None]
  - FATIGUE [None]
  - GENERAL PHYSICAL HEALTH DETERIORATION [None]
  - HYPONATRAEMIA [None]
  - ISCHAEMIC CARDIOMYOPATHY [None]
  - JOINT SWELLING [None]
  - LEUKOENCEPHALOPATHY [None]
  - OEDEMA PERIPHERAL [None]
  - ORTHOSTATIC HYPOTENSION [None]
  - PRODUCTIVE COUGH [None]
  - SEBORRHOEIC KERATOSIS [None]
  - SPUTUM DISCOLOURED [None]
  - STASIS DERMATITIS [None]
  - URINARY TRACT INFECTION [None]
  - VARICOSE VEIN [None]
  - VERTIGO [None]
